FAERS Safety Report 6453462-2 (Version None)
Quarter: 2009Q4

REPORT INFORMATION
  Report Type: 
  Country: None (occurrence: None)
  Receive Date: 20091124
  Receipt Date: 20091118
  Transmission Date: 20100525
  Serious: Yes (Other)
  Sender: FDA-Public Use
  Company Number: JP-ROCHE-669985

PATIENT
  Sex: Male

DRUGS (1)
  1. CEFTRIAXONE SODIUM [Suspect]
     Dosage: MEAN ADMINISTRATION DOSE: 12 GRAM
     Route: 065

REACTIONS (2)
  - CHOREOATHETOSIS [None]
  - DEPRESSED LEVEL OF CONSCIOUSNESS [None]
